FAERS Safety Report 9381286 (Version 1)
Quarter: 2013Q3

REPORT INFORMATION
  Report Type: Spontaneous
  Country: US (occurrence: US)
  Receive Date: 20130703
  Receipt Date: 20130703
  Transmission Date: 20140515
  Serious: No
  Sender: FDA-Public Use
  Company Number: US-009507513-1306USA009480

PATIENT
  Sex: Female

DRUGS (7)
  1. FOSAMAX [Suspect]
     Indication: OSTEOPOROSIS
     Dosage: 70 MG, QW
     Route: 048
     Dates: start: 2007
  2. DURAGESIC [Concomitant]
     Indication: FIBROMYALGIA
  3. WELCHOL [Concomitant]
  4. VENLAFAXINE HYDROCHLORIDE [Concomitant]
  5. CITRACAL [Concomitant]
  6. VITAMINS (UNSPECIFIED) [Concomitant]
  7. CALCIUM (UNSPECIFIED) [Concomitant]
     Dosage: 2000 MG SUPPLEMENT

REACTIONS (1)
  - Drug ineffective [Unknown]
